FAERS Safety Report 24209434 (Version 1)
Quarter: 2024Q3

REPORT INFORMATION
  Report Type: Spontaneous
  Country: US (occurrence: None)
  Receive Date: 20240813
  Receipt Date: 20240813
  Transmission Date: 20241017
  Serious: Yes (Life-Threatening, Other)
  Sender: Public
  Company Number: None

PATIENT
  Age: 65 Year
  Sex: Male
  Weight: 121.5 kg

DRUGS (9)
  1. CONTRAVE [Suspect]
     Active Substance: BUPROPION HYDROCHLORIDE\NALTREXONE HYDROCHLORIDE
     Indication: Increased appetite
     Dosage: 2 TABLETS TWICE A DAY ORAL
     Route: 048
     Dates: start: 20240420, end: 20240704
  2. LISINOPRIL [Concomitant]
     Active Substance: LISINOPRIL
  3. METOPOROL [Concomitant]
  4. SYNTHROIDE [Concomitant]
  5. HUMALOG [Concomitant]
     Active Substance: INSULIN LISPRO
  6. LANTUS [Concomitant]
     Active Substance: INSULIN GLARGINE
  7. RANOLOZINE [Concomitant]
  8. DULOXETINE [Concomitant]
     Active Substance: DULOXETINE
  9. ISOSRBIDE [Concomitant]

REACTIONS (6)
  - Blood glucose decreased [None]
  - Tremor [None]
  - Dyskinesia [None]
  - Fall [None]
  - Device issue [None]
  - Blood glucose normal [None]

NARRATIVE: CASE EVENT DATE: 20240704
